FAERS Safety Report 16656591 (Version 11)
Quarter: 2020Q4

REPORT INFORMATION
  Report Type: Spontaneous
  Country: US (occurrence: US)
  Receive Date: 20190801
  Receipt Date: 20201120
  Transmission Date: 20210113
  Serious: Yes (Disabling)
  Sender: FDA-Public Use
  Company Number: US-PFIZER INC-2019121266

PATIENT
  Age: 63 Year
  Sex: Female
  Weight: 95 kg

DRUGS (7)
  1. LYRICA [Suspect]
     Active Substance: PREGABALIN
     Dosage: 25 MG, 3X/DAY
     Route: 048
     Dates: start: 20191001
  2. LETROZOLE. [Concomitant]
     Active Substance: LETROZOLE
     Indication: BREAST CANCER FEMALE
     Dosage: 4 MG, 1X/DAY
  3. TEGRETOL [Concomitant]
     Active Substance: CARBAMAZEPINE
     Indication: TRIGEMINAL NEURALGIA
     Dosage: 200 MG, 2X/DAY
     Dates: start: 20151113
  4. LYRICA [Suspect]
     Active Substance: PREGABALIN
     Indication: TRIGEMINAL NEURALGIA
     Dosage: 50 MG, 2X/DAY
     Route: 048
     Dates: start: 201710, end: 201907
  5. LYRICA [Suspect]
     Active Substance: PREGABALIN
     Indication: MULTIPLE SCLEROSIS
     Dosage: 50 MG, 3X/DAY
     Route: 048
     Dates: start: 201907, end: 2019
  6. LYRICA [Suspect]
     Active Substance: PREGABALIN
     Dosage: 75 MG, 3X/DAY
  7. LYRICA [Suspect]
     Active Substance: PREGABALIN
     Indication: NEUROPATHY PERIPHERAL
     Dosage: 75 MG, 3X/DAY
     Route: 048
     Dates: start: 20171018

REACTIONS (10)
  - Product prescribing error [Unknown]
  - Weight decreased [Unknown]
  - Feeding disorder [Unknown]
  - Fall [Unknown]
  - Trigeminal neuralgia [Recovering/Resolving]
  - Head injury [Unknown]
  - Therapeutic product effect incomplete [Unknown]
  - Hypertension [Unknown]
  - Sleep disorder [Unknown]
  - Condition aggravated [Recovering/Resolving]

NARRATIVE: CASE EVENT DATE: 201902
